FAERS Safety Report 7229930-2 (Version None)
Quarter: 2011Q1

REPORT INFORMATION
  Report Type: 
  Country: None (occurrence: None)
  Receive Date: 20110117
  Receipt Date: 20110113
  Transmission Date: 20110831
  Serious: Yes (Other)
  Sender: FDA-Public Use
  Company Number: US-PFIZER INC-2011009506

PATIENT
  Age: 60 Year
  Sex: Male

DRUGS (1)
  1. MEDROL [Suspect]
     Indication: INTERVERTEBRAL DISC PROTRUSION
     Dosage: UNK

REACTIONS (1)
  - INSULIN RESISTANCE [None]
